FAERS Safety Report 9162932 (Version 1)
Quarter: 2013Q1

REPORT INFORMATION
  Report Type: Spontaneous
  Country: US (occurrence: None)
  Receive Date: 20130313
  Receipt Date: 20130313
  Transmission Date: 20140127
  Serious: Yes (Other)
  Sender: FDA-Public Use
  Company Number: None

PATIENT
  Age: 70 Year
  Sex: Male
  Weight: 86.4 kg

DRUGS (2)
  1. ONFI [Suspect]
     Indication: EPILEPSY
     Route: 048
     Dates: start: 201210
  2. TEGRETOL (CARBAMAZEPINE) UNKNOWN [Concomitant]

REACTIONS (4)
  - Convulsion [None]
  - Product substitution issue [None]
  - Product quality issue [None]
  - Off label use [None]
